FAERS Safety Report 5786031-8 (Version None)
Quarter: 2008Q2

REPORT INFORMATION
  Report Type: 
  Country: None (occurrence: None)
  Receive Date: 20080624
  Receipt Date: 20070621
  Transmission Date: 20081010
  Serious: No
  Sender: FDA-Public Use
  Company Number: US-ASTRAZENECA-2007UW14938

PATIENT
  Age: 42 Month
  Sex: Female

DRUGS (1)
  1. PULMICORT-100 [Suspect]
     Route: 055

REACTIONS (1)
  - MUSCLE TWITCHING [None]
